FAERS Safety Report 10052857 (Version 2)
Quarter: 2014Q2

REPORT INFORMATION
  Report Type: Spontaneous
  Country: JP (occurrence: JP)
  Receive Date: 20140402
  Receipt Date: 20140507
  Transmission Date: 20141212
  Serious: Yes (Death)
  Sender: FDA-Public Use
  Company Number: JP-009507513-1403JPN013745

PATIENT
  Age: 66 Year
  Sex: Female

DRUGS (3)
  1. REMERON [Suspect]
     Indication: DEPRESSION
     Dosage: 15 MG, QD
     Route: 048
     Dates: start: 20140304, end: 20140313
  2. SEPAZON [Suspect]
     Indication: ANXIETY
     Dosage: 1 MG, QD
     Route: 048
     Dates: start: 1990, end: 20140313
  3. ROHYPNOL [Suspect]
     Indication: INSOMNIA
     Dosage: 2 MG, QD
     Route: 048
     Dates: start: 1990, end: 20140313

REACTIONS (2)
  - Completed suicide [Fatal]
  - Depression [Unknown]
